FAERS Safety Report 6975537-1 (Version None)
Quarter: 2010Q3

REPORT INFORMATION
  Report Type: 
  Country: None (occurrence: None)
  Receive Date: 20100910
  Receipt Date: 20100901
  Transmission Date: 20110219
  Serious: No
  Sender: FDA-Public Use
  Company Number: US-BIOGENIDEC-2010BI030279

PATIENT
  Age: 44 Year
  Sex: Female

DRUGS (5)
  1. AVONEX [Suspect]
     Indication: MULTIPLE SCLEROSIS
     Route: 030
     Dates: start: 20100801
  2. AVONEX [Suspect]
     Route: 030
     Dates: start: 20100728, end: 20100815
  3. SYNTHROID [Concomitant]
     Indication: THYROID DISORDER
     Route: 048
  4. VITAMIN D [Concomitant]
     Indication: CALCIUM DEFICIENCY
     Route: 048
  5. VITAMIN B-12 [Concomitant]
     Indication: VITAMIN B12 DEFICIENCY
     Route: 030

REACTIONS (3)
  - CONTUSION [None]
  - HEADACHE [None]
  - PAIN [None]
